FAERS Safety Report 6150684-5 (Version None)
Quarter: 2009Q2

REPORT INFORMATION
  Report Type: 
  Country: None (occurrence: None)
  Receive Date: 20090408
  Receipt Date: 20090408
  Transmission Date: 20091009
  Serious: No
  Sender: FDA-Public Use
  Company Number: None

PATIENT
  Age: 3 Year
  Sex: Male
  Weight: 36 kg

DRUGS (2)
  1. SINGULAIR [Suspect]
     Indication: MULTIPLE ALLERGIES
     Dosage: 4 MG CHEWABLE TABLET 1 PER DAY PO
     Route: 048
     Dates: start: 20081115, end: 20081215
  2. SINGULAIR [Suspect]
     Indication: SINUS DISORDER
     Dosage: 4 MG CHEWABLE TABLET 1 PER DAY PO
     Route: 048
     Dates: start: 20081115, end: 20081215

REACTIONS (5)
  - ABNORMAL BEHAVIOUR [None]
  - AGGRESSION [None]
  - ANXIETY [None]
  - IRRITABILITY [None]
  - MOOD SWINGS [None]
